FAERS Safety Report 5041307-7 (Version None)
Quarter: 2006Q2

REPORT INFORMATION
  Report Type: 
  Country: None (occurrence: None)
  Receive Date: 20060626
  Receipt Date: 20060608
  Transmission Date: 20061013
  Serious: No
  Sender: FDA-Public Use
  Company Number: VER_0014_2006

PATIENT
  Age: 57 Year
  Sex: Male
  Weight: 70.3075 kg

DRUGS (1)
  1. TWINJECT (EPINEPHRINE) [Suspect]
     Indication: HYPERSENSITIVITY
     Dosage: 1 DF ONCE SC
     Route: 058
     Dates: start: 20060606, end: 20060606

REACTIONS (2)
  - LOSS OF CONSCIOUSNESS [None]
  - PHARMACEUTICAL PRODUCT COMPLAINT [None]
